FAERS Safety Report 6894517-8 (Version None)
Quarter: 2010Q3

REPORT INFORMATION
  Report Type: 
  Country: None (occurrence: None)
  Receive Date: 20100802
  Receipt Date: 20100722
  Transmission Date: 20110219
  Serious: Yes (Disabling)
  Sender: FDA-Public Use
  Company Number: BE-ASTRAZENECA-2010SE34534

PATIENT
  Sex: Male

DRUGS (8)
  1. CRESTOR [Suspect]
     Indication: HYPERCHOLESTEROLAEMIA
     Route: 048
     Dates: start: 20100101, end: 20100601
  2. RAMIPRIL [Concomitant]
     Indication: HYPERTENSION
     Dates: start: 20090601
  3. ASAFLOW [Concomitant]
     Indication: CARDIOVASCULAR EVENT PROPHYLAXIS
     Dates: start: 20091201
  4. VENLAFAXINE [Concomitant]
     Indication: DEPRESSION
     Dates: start: 20091201
  5. DUOVENT [Concomitant]
     Dosage: WHEN NEEDED
  6. AMLODIPINE [Concomitant]
     Indication: HYPERTENSION
     Dates: start: 20100401, end: 20100601
  7. LODOZ [Concomitant]
     Indication: HYPERTENSION
     Dosage: 10/6.25 MG
     Dates: start: 20100301
  8. XANAX [Concomitant]
     Indication: ANXIETY
     Dates: start: 20091101

REACTIONS (2)
  - JOINT SPRAIN [None]
  - LIGAMENT RUPTURE [None]
